FAERS Safety Report 5186312-5 (Version None)
Quarter: 2006Q4

REPORT INFORMATION
  Report Type: 
  Country: None (occurrence: None)
  Receive Date: 20061213
  Receipt Date: 20061130
  Transmission Date: 20070319
  Serious: Yes (Other)
  Sender: FDA-Public Use
  Company Number: CAWYE412103NOV06

PATIENT
  Age: 39 Year
  Sex: Male

DRUGS (4)
  1. EFFEXOR XR [Suspect]
     Indication: MAJOR DEPRESSION
     Dosage: 37.5 MG 1X PER 1 DAY ORAL - RESTARTED THERAPY- SEE IMAGE
     Route: 048
     Dates: start: 20021001, end: 20061001
  2. EFFEXOR XR [Suspect]
     Indication: MAJOR DEPRESSION
     Dosage: 37.5 MG 1X PER 1 DAY ORAL - RESTARTED THERAPY- SEE IMAGE
     Route: 048
     Dates: start: 20060101
  3. VENTOLIN (SALBUTAMOL SULFATE) [Concomitant]
  4. FLOVENT [Concomitant]

REACTIONS (10)
  - AGGRESSION [None]
  - DIZZINESS [None]
  - DRUG WITHDRAWAL SYNDROME [None]
  - LOSS OF LIBIDO [None]
  - NAUSEA [None]
  - NIGHTMARE [None]
  - PARAESTHESIA [None]
  - SOPOR [None]
  - VOMITING [None]
  - WRONG TECHNIQUE IN DRUG USAGE PROCESS [None]
